FAERS Safety Report 23892831 (Version 1)
Quarter: 2024Q2

REPORT INFORMATION
  Report Type: Spontaneous
  Country: US (occurrence: US)
  Receive Date: 20240524
  Receipt Date: 20240524
  Transmission Date: 20240715
  Serious: Yes (Other)
  Sender: FDA-Public Use
  Company Number: US-TEVA-VS-3199481

PATIENT
  Age: 87 Year
  Sex: Female

DRUGS (1)
  1. LORAZEPAM [Suspect]
     Active Substance: LORAZEPAM
     Indication: Product used for unknown indication
     Route: 065

REACTIONS (5)
  - Respiratory depression [Unknown]
  - Throat irritation [Unknown]
  - Drug hypersensitivity [Unknown]
  - Product use issue [Unknown]
  - Oral discomfort [Unknown]
